FAERS Safety Report 13705988 (Version 1)
Quarter: 2017Q2

REPORT INFORMATION
  Report Type: Spontaneous
  Country: FR (occurrence: FR)
  Receive Date: 20170630
  Receipt Date: 20170630
  Transmission Date: 20170830
  Serious: Yes (Other)
  Sender: FDA-Public Use
  Company Number: FR-BAYER-2017-123419

PATIENT
  Sex: Female

DRUGS (1)
  1. MIRENA [Suspect]
     Active Substance: LEVONORGESTREL
     Indication: CONTRACEPTION
     Dosage: 20 MCG/24HR, CONT
     Route: 015
     Dates: start: 20121009, end: 20170105

REACTIONS (9)
  - Depression [Unknown]
  - Alopecia [Unknown]
  - Headache [Unknown]
  - Abdominal pain [Unknown]
  - Breast pain [Unknown]
  - Adnexa uteri pain [Unknown]
  - Loss of libido [Unknown]
  - Breast mass [Unknown]
  - Abdominal distension [Unknown]
